FAERS Safety Report 5158706-5 (Version None)
Quarter: 2006Q4

REPORT INFORMATION
  Report Type: 
  Country: None (occurrence: None)
  Receive Date: 20061128
  Receipt Date: 20061117
  Transmission Date: 20070319
  Serious: Yes (Hospitalization)
  Sender: FDA-Public Use
  Company Number: CA-GLAXOSMITHKLINE-A0627960A

PATIENT
  Age: 69 Year
  Sex: Male

DRUGS (8)
  1. SEREVENT [Suspect]
     Indication: CHRONIC OBSTRUCTIVE PULMONARY DISEASE
     Dosage: 1PUFF TWICE PER DAY
     Route: 055
     Dates: start: 20030101
  2. BISOPROLOL FUMARATE [Suspect]
     Dosage: 5MG PER DAY
     Dates: start: 20061103
  3. FLOVENT [Concomitant]
     Dosage: 2PUFF FOUR TIMES PER DAY
     Dates: start: 20020101
  4. MICRO-K [Concomitant]
     Dosage: 1800MG TWICE PER DAY
     Dates: start: 20060616
  5. TERAZOSIN HCL [Concomitant]
     Dosage: 2MG AT NIGHT
     Dates: start: 20060802
  6. SPIRIVA [Concomitant]
     Dosage: 18MG PER DAY
     Dates: start: 20030101
  7. NORVASC [Concomitant]
     Dosage: 10MG PER DAY
     Dates: start: 20040101
  8. HYDROCHLOROTHIAZIDE [Concomitant]
     Dosage: 25MG PER DAY
     Dates: start: 20020101

REACTIONS (3)
  - DRUG INEFFECTIVE [None]
  - PHARMACEUTICAL PRODUCT COMPLAINT [None]
  - RESPIRATORY DISORDER [None]
